FAERS Safety Report 11623146 (Version 1)
Quarter: 2015Q4

REPORT INFORMATION
  Report Type: Spontaneous
  Country: US (occurrence: US)
  Receive Date: 20151013
  Receipt Date: 20151013
  Transmission Date: 20160304
  Serious: No
  Sender: FDA-Public Use
  Company Number: US-JNJFOC-20150112995

PATIENT
  Age: 31 Year
  Sex: Male

DRUGS (1)
  1. TYLENOL EXTRA STRENGTH [Suspect]
     Active Substance: ACETAMINOPHEN
     Indication: VIRAL INFECTION
     Dosage: 2 CAPLETS
     Route: 048
     Dates: start: 201501, end: 201501

REACTIONS (3)
  - Product use issue [Unknown]
  - Product packaging issue [Unknown]
  - Amphetamines positive [Unknown]
